FAERS Safety Report 10063648 (Version 1)
Quarter: 2014Q2

REPORT INFORMATION
  Report Type: Spontaneous
  Country: JP (occurrence: JP)
  Receive Date: 20140407
  Receipt Date: 20140407
  Transmission Date: 20141212
  Serious: Yes (Other)
  Sender: FDA-Public Use
  Company Number: JP-BAUSCH-BL-2014-001751

PATIENT
  Sex: Female

DRUGS (1)
  1. BRONUCK OPHTHALMIC SOLUTION 0.1% [Suspect]
     Indication: PRODUCT USED FOR UNKNOWN INDICATION
     Route: 047

REACTIONS (2)
  - Corneal opacity [Not Recovered/Not Resolved]
  - Eye irritation [Unknown]
